FAERS Safety Report 7625949-8 (Version None)
Quarter: 2011Q3

REPORT INFORMATION
  Report Type: 
  Country: None (occurrence: None)
  Receive Date: 20110721
  Receipt Date: 20110721
  Transmission Date: 20111222
  Serious: Yes (Other)
  Sender: FDA-Public Use
  Company Number: None

PATIENT
  Age: 56 Year
  Sex: Female
  Weight: 81.646 kg

DRUGS (1)
  1. TORADOL [Suspect]
     Indication: NEPHROLITHIASIS
     Dates: start: 20110704, end: 20110710

REACTIONS (8)
  - SOMNOLENCE [None]
  - STOMATITIS [None]
  - ARTHRALGIA [None]
  - FATIGUE [None]
  - ASTHENIA [None]
  - NAUSEA [None]
  - INFLUENZA LIKE ILLNESS [None]
  - MALAISE [None]
